FAERS Safety Report 25987716 (Version 2)
Quarter: 2025Q4

REPORT INFORMATION
  Report Type: Report from Study
  Country: ZA (occurrence: ZA)
  Receive Date: 20251103
  Receipt Date: 20251110
  Transmission Date: 20260117
  Serious: Yes (Other)
  Sender: SANOFI AVENTIS
  Company Number: ZA-SA-2025SA248126

PATIENT
  Age: 49 Year
  Sex: Female

DRUGS (4)
  1. INSULIN GLARGINE [Suspect]
     Active Substance: INSULIN GLARGINE
     Indication: Type 2 diabetes mellitus
     Dosage: 26 IU, QD
     Route: 058
     Dates: start: 20250807, end: 2025
  2. INSULIN GLARGINE [Suspect]
     Active Substance: INSULIN GLARGINE
     Dosage: 42 IU, HS
     Route: 058
     Dates: start: 2025
  3. GLICLAZIDE [Concomitant]
     Active Substance: GLICLAZIDE
     Dosage: UNK
  4. AMLODIPINE BESYLATE\HYDROCHLOROTHIAZIDE\VALSARTAN [Concomitant]
     Active Substance: AMLODIPINE BESYLATE\HYDROCHLOROTHIAZIDE\VALSARTAN
     Indication: Hypertension
     Dosage: 1 TABLET IN THE MORNING

REACTIONS (8)
  - Neuropathy peripheral [Recovering/Resolving]
  - Hypoaesthesia [Recovered/Resolved]
  - Peripheral coldness [Recovered/Resolved]
  - Pain in extremity [Recovering/Resolving]
  - Hunger [Recovering/Resolving]
  - Blood glucose increased [Recovering/Resolving]
  - Multiple use of single-use product [Unknown]
  - Blood glucose fluctuation [Not Recovered/Not Resolved]

NARRATIVE: CASE EVENT DATE: 20250101
